FAERS Safety Report 13663234 (Version 1)
Quarter: 2017Q2

REPORT INFORMATION
  Report Type: Report from Study
  Country: None (occurrence: US)
  Receive Date: 20170619
  Receipt Date: 20170619
  Transmission Date: 20170830
  Serious: Yes (Hospitalization, Other)
  Sender: FDA-Public Use
  Company Number: US-ABBVIE-17K-163-1970642-00

PATIENT
  Age: 52 Year
  Sex: Female

DRUGS (1)
  1. HUMIRA [Suspect]
     Active Substance: ADALIMUMAB
     Indication: PSORIASIS
     Route: 058
     Dates: end: 20170409

REACTIONS (15)
  - Impaired healing [Unknown]
  - Urinary tract infection [Unknown]
  - Heart rate increased [Unknown]
  - Pyrexia [Unknown]
  - Wound secretion [Unknown]
  - Sepsis [Unknown]
  - Fatigue [Unknown]
  - Atrial fibrillation [Unknown]
  - Diabetes mellitus [Unknown]
  - Atrial flutter [Unknown]
  - Thyroid disorder [Unknown]
  - Infection [Not Recovered/Not Resolved]
  - Wound haemorrhage [Unknown]
  - Psoriasis [Unknown]
  - Urinary tract infection [Unknown]

NARRATIVE: CASE EVENT DATE: 2017
